FAERS Safety Report 12826560 (Version 3)
Quarter: 2017Q1

REPORT INFORMATION
  Report Type: Spontaneous
  Country: US (occurrence: US)
  Receive Date: 20161007
  Receipt Date: 20170123
  Transmission Date: 20170428
  Serious: Yes (Other)
  Sender: FDA-Public Use
  Company Number: US-PFIZER INC-2016466395

PATIENT
  Age: 60 Year
  Sex: Male
  Weight: 84 kg

DRUGS (7)
  1. LYRICA [Suspect]
     Active Substance: PREGABALIN
     Indication: NEUROPATHY PERIPHERAL
     Dosage: 525 MG, DAILY, (300 MG IN MORNING, 225MG IN EVENING)
  2. LYRICA [Suspect]
     Active Substance: PREGABALIN
     Dosage: 450 MG, DAILY, (225MG IN THE MORNING AND 225MG THE EVENING)
  3. CLONAZEPAM. [Suspect]
     Active Substance: CLONAZEPAM
     Indication: ANXIETY
     Dosage: 1 MG, AS NEEDED
  4. LYRICA [Suspect]
     Active Substance: PREGABALIN
     Dosage: 300 MG, UNK (300 MG X1)
  5. LYRICA [Suspect]
     Active Substance: PREGABALIN
     Dosage: 225 MG, UNK (225 MG X1)
  6. LYRICA [Suspect]
     Active Substance: PREGABALIN
     Indication: PAIN
     Dosage: 600MG, DAILY, (300 MG, 2X/DAY, IN MORNING AND NIGHT)
     Dates: start: 2007
  7. LYRICA [Suspect]
     Active Substance: PREGABALIN
     Dosage: 300 MG, UNK (300 MG DOSE THIS MORNING)

REACTIONS (6)
  - Mental disorder [Unknown]
  - Back pain [Unknown]
  - Pain in extremity [Unknown]
  - Dysstasia [Unknown]
  - Discomfort [Unknown]
  - Mental impairment [Unknown]

NARRATIVE: CASE EVENT DATE: 201610
